FAERS Safety Report 7352271-X (Version None)
Quarter: 2011Q1

REPORT INFORMATION
  Report Type: 
  Country: None (occurrence: None)
  Receive Date: 20110315
  Receipt Date: 20110311
  Transmission Date: 20110831
  Serious: Yes (Hospitalization)
  Sender: FDA-Public Use
  Company Number: DE-BRISTOL-MYERS SQUIBB COMPANY-15279169

PATIENT
  Age: 72 Year
  Sex: Male
  Weight: 67 kg

DRUGS (3)
  1. CISPLATIN [Suspect]
     Indication: GASTROOESOPHAGEAL CANCER
     Dosage: ON DAY 1 OF CYCLE MOST RECENT INFUSION ON : 27-AUG-2010
     Route: 042
     Dates: start: 20100602, end: 20100903
  2. CETUXIMAB [Suspect]
     Indication: GASTROOESOPHAGEAL CANCER
     Dosage: RECENT INFUSION ON 01-SEP-2010.14TH ADMINISTRATION IN TOTAL
     Route: 042
     Dates: start: 20100602, end: 20100903
  3. CAPECITABINE [Suspect]
     Indication: GASTROOESOPHAGEAL CANCER
     Dosage: ON DAY 1-15 MOST RECENT INFUSION ON : 01-SEP-2010
     Route: 048
     Dates: start: 20100603, end: 20100901

REACTIONS (1)
  - SICK SINUS SYNDROME [None]
